FAERS Safety Report 16737184 (Version 1)
Quarter: 2019Q3

REPORT INFORMATION
  Report Type: Spontaneous
  Country: IT (occurrence: IT)
  Receive Date: 20190823
  Receipt Date: 20190823
  Transmission Date: 20191005
  Serious: Yes (Other)
  Sender: FDA-Public Use
  Company Number: IT-MYLANLABS-2019M1078490

PATIENT
  Age: 69 Year
  Sex: Male

DRUGS (4)
  1. INDAPAMIDE. [Suspect]
     Active Substance: INDAPAMIDE
     Indication: HYPERTENSION
     Dosage: 2.5 MILLIGRAM, QD
     Route: 048
     Dates: start: 20190311, end: 20190315
  2. PAROXETINE. [Concomitant]
     Active Substance: PAROXETINE
     Dosage: 20 MILLIGRAM
  3. XANAX [Concomitant]
     Active Substance: ALPRAZOLAM
     Dosage: 0.5 MILLIGRAM
  4. TAREG [Suspect]
     Active Substance: VALSARTAN
     Indication: HYPERTENSION
     Dosage: 160 MILLIGRAM, QD
     Route: 048
     Dates: start: 20190311, end: 20190315

REACTIONS (3)
  - Hypotension [Recovering/Resolving]
  - Loss of consciousness [Recovering/Resolving]
  - Asthenia [Recovering/Resolving]

NARRATIVE: CASE EVENT DATE: 20190315
